FAERS Safety Report 11682524 (Version 1)
Quarter: 2015Q4

REPORT INFORMATION
  Report Type: Spontaneous
  Country: US (occurrence: None)
  Receive Date: 20151028
  Receipt Date: 20151028
  Transmission Date: 20160304
  Serious: No
  Sender: FDA-Public Use
  Company Number: None

PATIENT
  Age: 76 Year
  Sex: Male
  Weight: 84.3 kg

DRUGS (2)
  1. VANCOMYCIN [Suspect]
     Active Substance: VANCOMYCIN
     Route: 048
     Dates: start: 20150925, end: 20150928
  2. PIPERACILLIN/TAZOBACTAM [Suspect]
     Active Substance: PIPERACILLIN SODIUM\TAZOBACTAM SODIUM
     Route: 042
     Dates: start: 20150925, end: 20150928

REACTIONS (4)
  - Tubulointerstitial nephritis [None]
  - Drug level increased [None]
  - Acute kidney injury [None]
  - Hyperglycaemia [None]

NARRATIVE: CASE EVENT DATE: 20151008
